FAERS Safety Report 11321413 (Version 1)
Quarter: 2015Q3

REPORT INFORMATION
  Report Type: Report from Study
  Country: ES (occurrence: ES)
  Receive Date: 20150729
  Receipt Date: 20150729
  Transmission Date: 20151125
  Serious: Yes (Hospitalization)
  Sender: FDA-Public Use
  Company Number: ES-BAYER-2015-386986

PATIENT
  Age: 94 Year
  Sex: Female

DRUGS (6)
  1. ENALAPRIL [Concomitant]
     Active Substance: ENALAPRIL
     Dosage: 5 MG, QD
     Route: 048
     Dates: start: 20130121
  2. BETAHISTINE [Concomitant]
     Active Substance: BETAHISTINE
     Dosage: 8 MG, BID
     Route: 048
     Dates: start: 20130321
  3. ADIRO 100MG GASTRO RESISTANT TABLETS, 30 TABLETS [Suspect]
     Active Substance: ASPIRIN
     Dosage: 100 MG, QD
     Route: 048
     Dates: start: 20130121
  4. NOLOTIL [Suspect]
     Active Substance: METAMIZOLE
     Dosage: 575 MG, BID
     Route: 048
     Dates: start: 20140805
  5. FUROSEMIDA [Concomitant]
     Active Substance: FUROSEMIDE
     Dosage: 40 MG, QD
     Route: 048
     Dates: start: 20130201
  6. SIMVASTATIN. [Concomitant]
     Active Substance: SIMVASTATIN
     Dosage: 40 MG, QD
     Route: 048
     Dates: start: 20130321

REACTIONS (2)
  - Iron deficiency anaemia [Unknown]
  - Hypochromic anaemia [None]

NARRATIVE: CASE EVENT DATE: 20150323
